FAERS Safety Report 16758270 (Version 1)
Quarter: 2019Q3

REPORT INFORMATION
  Report Type: Spontaneous
  Country: TR (occurrence: TR)
  Receive Date: 20190830
  Receipt Date: 20190830
  Transmission Date: 20191005
  Serious: Yes (Other)
  Sender: FDA-Public Use
  Company Number: TR-ASTRAZENECA-2019SF22033

PATIENT
  Sex: Male

DRUGS (1)
  1. TAGRISSO [Suspect]
     Active Substance: OSIMERTINIB
     Dosage: UNKNOWN
     Route: 048

REACTIONS (5)
  - Ileus paralytic [Recovering/Resolving]
  - Dyspnoea [Unknown]
  - Pneumonia aspiration [Unknown]
  - Vomiting [Unknown]
  - Pneumonitis [Unknown]
